FAERS Safety Report 9218027 (Version 2)
Quarter: 2013Q3

REPORT INFORMATION
  Report Type: Spontaneous
  Country: US (occurrence: US)
  Receive Date: 20130408
  Receipt Date: 20130722
  Transmission Date: 20140515
  Serious: Yes (Death, Life-Threatening, Hospitalization, Other)
  Sender: FDA-Public Use
  Company Number: US-TARO-2013P1004311

PATIENT
  Age: 56 Year
  Sex: Female
  Weight: 103.4 kg

DRUGS (20)
  1. WARFARIN SODIUM TABLETS USP 5MG [Suspect]
     Indication: DEEP VEIN THROMBOSIS
     Route: 048
     Dates: end: 201302
  2. WARFARIN SODIUM TABLETS USP 5MG [Suspect]
     Indication: PULMONARY EMBOLISM
     Route: 048
     Dates: end: 201302
  3. VICODIN 5/500 (HYDROCODONE/APAP 5/500) [Concomitant]
     Route: 048
  4. FOSAMAX (ALENDRONATE SODIUM) [Concomitant]
     Route: 048
  5. TIGAN (TRIMETHOBENZAMIDE) [Concomitant]
     Route: 048
  6. TIGAN (TRIMETHOBENZAMIDE) [Concomitant]
     Route: 054
  7. TOPAMAX (TOPIRAMATE) [Concomitant]
     Route: 048
  8. REMERON (MIRTAZAPINE) [Concomitant]
     Route: 048
  9. NEURONTIN (GABAPENTIN) [Concomitant]
     Route: 048
  10. DEPAKOTE (DIVALPROEX SODIUM) [Concomitant]
     Route: 048
  11. ZANTAC (RANITIDINE) [Concomitant]
     Route: 048
  12. REGLAN (METOCLOPRAMIDE) [Concomitant]
     Route: 048
  13. LASIX (FUROSEMIDE) [Concomitant]
     Route: 048
  14. NEXIUM (ESOMEPRAZOLE MAGNESIUM) [Concomitant]
     Route: 048
  15. LEVSIN (HYOSCYAMINE) [Concomitant]
     Route: 060
  16. LEVSIN (HYOSCYAMINE) [Concomitant]
     Route: 060
  17. ZANAFLEX (TIZANIDINE) [Concomitant]
     Route: 048
  18. NORTRIPTYLINE [Concomitant]
     Route: 048
  19. PREDNISONE [Concomitant]
     Route: 048
  20. ASPIRIN [Concomitant]
     Route: 048

REACTIONS (23)
  - Cerebral haemorrhage [Fatal]
  - International normalised ratio increased [Unknown]
  - Product quality issue [Unknown]
  - Brain herniation [Fatal]
  - Pulmonary alveolar haemorrhage [Not Recovered/Not Resolved]
  - Pulmonary oedema [Not Recovered/Not Resolved]
  - Asthenia [Not Recovered/Not Resolved]
  - Intentional overdose [Not Recovered/Not Resolved]
  - Crohn^s disease [Not Recovered/Not Resolved]
  - Pain [Not Recovered/Not Resolved]
  - Factor V deficiency [Not Recovered/Not Resolved]
  - Livedo reticularis [Not Recovered/Not Resolved]
  - Pain in extremity [Not Recovered/Not Resolved]
  - Nausea [Not Recovered/Not Resolved]
  - Cardiac failure congestive [Not Recovered/Not Resolved]
  - Convulsion [Not Recovered/Not Resolved]
  - Wound [Not Recovered/Not Resolved]
  - Chest pain [Not Recovered/Not Resolved]
  - Diarrhoea [Not Recovered/Not Resolved]
  - Cardio-respiratory arrest [Not Recovered/Not Resolved]
  - Joint injury [Not Recovered/Not Resolved]
  - Skin disorder [Not Recovered/Not Resolved]
  - Electrocardiogram T wave abnormal [Fatal]
